FAERS Safety Report 4297838-0 (Version None)
Quarter: 2004Q1

REPORT INFORMATION
  Report Type: 
  Country: None (occurrence: None)
  Receive Date: 20040213
  Receipt Date: 20040205
  Transmission Date: 20041129
  Serious: Yes (Other)
  Sender: FDA-Public Use
  Company Number: AU-JNJFOC-20040104993

PATIENT
  Sex: Female

DRUGS (1)
  1. RISPERDAL [Suspect]
     Indication: DRUG USE FOR UNKNOWN INDICATION
     Dosage: 3 MG, 1 IN 1 DAY, ORAL
     Route: 048

REACTIONS (4)
  - ACUTE PSYCHOSIS [None]
  - COMPLICATIONS OF MATERNAL EXPOSURE TO THERAPEUTIC DRUGS [None]
  - REFUSAL OF TREATMENT BY PATIENT [None]
  - ULTRASOUND ANTENATAL SCREEN ABNORMAL [None]
